FAERS Safety Report 10781624 (Version 1)
Quarter: 2015Q1

REPORT INFORMATION
  Report Type: Spontaneous
  Country: DE (occurrence: DE)
  Receive Date: 20150210
  Receipt Date: 20150210
  Transmission Date: 20150721
  Serious: Yes (Other)
  Sender: FDA-Public Use
  Company Number: DE-BAYER-2015-015421

PATIENT
  Age: 40 Year
  Sex: Female
  Weight: 75 kg

DRUGS (4)
  1. MAXIM [Suspect]
     Active Substance: DIENOGEST\ETHINYL ESTRADIOL
     Indication: ORAL CONTRACEPTION
     Dosage: 1 DF, QD
     Route: 048
     Dates: start: 201411
  2. AVONEX [Concomitant]
     Active Substance: INTERFERON BETA-1A
     Indication: MULTIPLE SCLEROSIS
     Dosage: 1 DF, OW
     Dates: start: 201411
  3. DIANE 35 [Suspect]
     Active Substance: CYPROTERONE ACETATE\ETHINYL ESTRADIOL
     Indication: ORAL CONTRACEPTION
     Dosage: 1 DF, QD
     Route: 048
     Dates: start: 2013, end: 2013
  4. QLAIRA FILMTABLETTEN [Suspect]
     Active Substance: DIENOGEST\ESTRADIOL VALERATE
     Indication: ORAL CONTRACEPTION
     Dosage: 1 DF, QD
     Route: 048
     Dates: end: 2011

REACTIONS (8)
  - Photophobia [None]
  - Dizziness [Not Recovered/Not Resolved]
  - Breast oedema [None]
  - Spastic paralysis [Not Recovered/Not Resolved]
  - Hyperacusis [None]
  - Loss of control of legs [Not Recovered/Not Resolved]
  - Abasia [Not Recovered/Not Resolved]
  - Wound dehiscence [None]

NARRATIVE: CASE EVENT DATE: 2011
